FAERS Safety Report 24096356 (Version 1)
Quarter: 2024Q3

REPORT INFORMATION
  Report Type: Spontaneous
  Country: US (occurrence: None)
  Receive Date: 20240715
  Receipt Date: 20240715
  Transmission Date: 20241016
  Serious: Yes (Other)
  Sender: Public
  Company Number: None

PATIENT
  Age: 61 Year
  Sex: Female
  Weight: 85.5 kg

DRUGS (9)
  1. DIETARY SUPPLEMENT [Suspect]
     Active Substance: DIETARY SUPPLEMENT
     Indication: Back pain
     Dosage: 1 TABLET DAILY ORAL?
     Route: 048
  2. DICLOFENAC [Suspect]
     Active Substance: DICLOFENAC
  3. TORSEMIDE [Concomitant]
     Active Substance: TORSEMIDE
  4. PREVACID [Concomitant]
     Active Substance: LANSOPRAZOLE
  5. PREMARIN [Concomitant]
     Active Substance: ESTROGENS, CONJUGATED
  6. COZAAR [Concomitant]
     Active Substance: LOSARTAN POTASSIUM
  7. VITAMINS [Concomitant]
     Active Substance: VITAMINS
  8. PROBIOTICS NOS [Concomitant]
     Active Substance: PROBIOTICS NOS
  9. CALCIUM [Concomitant]
     Active Substance: CALCIUM

REACTIONS (1)
  - Liver disorder [None]

NARRATIVE: CASE EVENT DATE: 20240702
